FAERS Safety Report 23851029 (Version 1)
Quarter: 2024Q2

REPORT INFORMATION
  Report Type: Spontaneous
  Country: CA (occurrence: CA)
  Receive Date: 20240514
  Receipt Date: 20240514
  Transmission Date: 20240715
  Serious: Yes (Other)
  Sender: FDA-Public Use
  Company Number: CA-SANDOZ-SDZ2024CA047905

PATIENT
  Age: 66 Year
  Sex: Female

DRUGS (1)
  1. CIPROFLOXACIN [Suspect]
     Active Substance: CIPROFLOXACIN
     Indication: Product used for unknown indication
     Dosage: UNK
     Route: 048

REACTIONS (7)
  - Dysphagia [Unknown]
  - Dysuria [Unknown]
  - Genital ulceration [Unknown]
  - Odynophagia [Unknown]
  - Pyrexia [Unknown]
  - Rash [Unknown]
  - Stevens-Johnson syndrome [Unknown]
